FAERS Safety Report 9770989 (Version 2)
Quarter: 2013Q4

REPORT INFORMATION
  Report Type: Spontaneous
  Country: US (occurrence: US)
  Receive Date: 20131218
  Receipt Date: 20131218
  Transmission Date: 20140711
  Serious: No
  Sender: FDA-Public Use
  Company Number: US-MYLANLABS-2013S1017683

PATIENT
  Age: 61 Year
  Sex: Male
  Weight: 80 kg

DRUGS (6)
  1. ROCURONIUM BROMIDE INJECTION [Suspect]
     Indication: GENERAL ANAESTHESIA
     Route: 042
     Dates: start: 20130725, end: 20130725
  2. PROPOFOL [Concomitant]
     Route: 042
  3. VERSED [Concomitant]
     Route: 042
  4. FENTANYL [Concomitant]
     Route: 042
  5. DECADRON [Concomitant]
     Route: 042
  6. ZOFRAN [Concomitant]
     Route: 042

REACTIONS (2)
  - Drug ineffective [Recovered/Resolved]
  - Anaesthetic complication [Recovered/Resolved]
